FAERS Safety Report 10082590 (Version 1)
Quarter: 2014Q2

REPORT INFORMATION
  Report Type: Spontaneous
  Country: BR (occurrence: BR)
  Receive Date: 20140416
  Receipt Date: 20140416
  Transmission Date: 20141212
  Serious: Yes (Hospitalization)
  Sender: FDA-Public Use
  Company Number: BR-PFIZER INC-2014105152

PATIENT
  Age: 34 Year
  Sex: Male
  Weight: 53 kg

DRUGS (2)
  1. LYRICA [Suspect]
     Indication: SPINAL PAIN
     Dosage: 2 CAPSULES OF 75MG (150MG) DAILY
     Route: 048
  2. VIAGRA [Suspect]
     Dosage: 50 MG, UNK
     Route: 048

REACTIONS (4)
  - Spinal cord disorder [Unknown]
  - Spinal cord disorder [Unknown]
  - Spinal cord disorder [Unknown]
  - Bladder disorder [Unknown]
